FAERS Safety Report 5052020-4 (Version None)
Quarter: 2006Q3

REPORT INFORMATION
  Report Type: 
  Country: None (occurrence: None)
  Receive Date: 20060711
  Receipt Date: 20060616
  Transmission Date: 20061208
  Serious: No
  Sender: FDA-Public Use
  Company Number: FI200606004242

PATIENT
  Age: 67 Year
  Sex: Female

DRUGS (1)
  1. CYMBALTA [Suspect]
     Indication: DEPRESSION
     Dosage: 60 MG DAILY (1/D) ORAL
     Route: 048
     Dates: start: 20060324, end: 20060523

REACTIONS (1)
  - HEPATIC ENZYME INCREASED [None]
